FAERS Safety Report 25510717 (Version 1)
Quarter: 2025Q3

REPORT INFORMATION
  Report Type: Spontaneous
  Country: US (occurrence: US)
  Receive Date: 20250703
  Receipt Date: 20250703
  Transmission Date: 20251020
  Serious: No
  Sender: RADIUS PHARM
  Company Number: US-RADIUS HEALTH INC.-2024US006082

PATIENT
  Sex: Female

DRUGS (1)
  1. TYMLOS [Suspect]
     Active Substance: ABALOPARATIDE
     Indication: Product used for unknown indication
     Route: 065
     Dates: end: 20240715

REACTIONS (13)
  - Headache [Unknown]
  - Sinus congestion [Unknown]
  - Lower respiratory tract congestion [Unknown]
  - Arthralgia [Unknown]
  - Blood glucose increased [Unknown]
  - Abdominal discomfort [Unknown]
  - Heart rate increased [Unknown]
  - Ventricular extrasystoles [Unknown]
  - Neuropathy peripheral [Unknown]
  - Abdominal distension [Unknown]
  - Unevaluable event [Unknown]
  - Muscle spasms [Unknown]
  - Glycosylated haemoglobin increased [Unknown]
